FAERS Safety Report 9690122 (Version 2)
Quarter: 2013Q4

REPORT INFORMATION
  Report Type: Report from Study
  Country: AE (occurrence: AE)
  Receive Date: 20131115
  Receipt Date: 20131119
  Transmission Date: 20140711
  Serious: Yes (Hospitalization)
  Sender: FDA-Public Use
  Company Number: PHHY2013AE127026

PATIENT
  Age: 57 Year
  Sex: Male
  Weight: 55.5 kg

DRUGS (1)
  1. EXFORGE HCT [Suspect]
     Indication: HYPERTENSION
     Dosage: 1 DF (160 MG VALS, 5 MG AMLO AND 12.5 MG HCTZ), QD
     Route: 048
     Dates: start: 20130929

REACTIONS (6)
  - Haemorrhagic stroke [Recovered/Resolved]
  - Headache [Unknown]
  - Cerebral atrophy [Unknown]
  - Lacunar infarction [Unknown]
  - Thalamus haemorrhage [Unknown]
  - Cerebral haemorrhage [Unknown]
